FAERS Safety Report 5895734-6 (Version None)
Quarter: 2008Q3

REPORT INFORMATION
  Report Type: 
  Country: None (occurrence: None)
  Receive Date: 20080924
  Receipt Date: 20080627
  Transmission Date: 20090109
  Serious: No
  Sender: FDA-Public Use
  Company Number: US-BAYER-200827914NA

PATIENT
  Sex: Male

DRUGS (2)
  1. MIRENA [Suspect]
     Indication: CONTRACEPTION
     Route: 015
  2. MIRENA [Suspect]
     Route: 015

REACTIONS (1)
  - GENITAL PAIN [None]
